FAERS Safety Report 22645614 (Version 1)
Quarter: 2023Q2

REPORT INFORMATION
  Report Type: Spontaneous
  Country: CN (occurrence: CN)
  Receive Date: 20230627
  Receipt Date: 20230627
  Transmission Date: 20230722
  Serious: Yes (Life-Threatening, Hospitalization, Other)
  Sender: FDA-Public Use
  Company Number: CN-PFIZER INC-PV202300110840

PATIENT
  Age: 5 Year
  Sex: Male
  Weight: 18.5 kg

DRUGS (8)
  1. CYTARABINE [Suspect]
     Active Substance: CYTARABINE
     Indication: Burkitt^s lymphoma
     Dosage: 0.038000 G, 1X/DAY
     Route: 041
     Dates: start: 20230525, end: 20230529
  2. CYTARABINE [Suspect]
     Active Substance: CYTARABINE
     Indication: Burkitt^s lymphoma
     Dosage: 2307.000 MG, 1X/DAY
     Route: 041
     Dates: start: 20230525, end: 20230529
  3. ETOPOSIDE [Suspect]
     Active Substance: ETOPOSIDE
     Indication: Burkitt^s lymphoma
     Dosage: 0.154000 G, 1X/DAY
     Route: 041
     Dates: start: 20230525, end: 20230529
  4. MABTHERA [Concomitant]
     Active Substance: RITUXIMAB
     Indication: Burkitt^s lymphoma
     Dosage: 0.288000 G, 1X/DAY
     Route: 041
     Dates: start: 20230524, end: 20230524
  5. SODIUM CHLORIDE [Concomitant]
     Active Substance: SODIUM CHLORIDE
     Indication: Vehicle solution use
     Dosage: 288.0000 ML, 1X/DAY
     Route: 041
     Dates: start: 20230524, end: 20230524
  6. SODIUM CHLORIDE [Concomitant]
     Active Substance: SODIUM CHLORIDE
     Dosage: 616.000 ML, 1X/DAY
     Route: 041
     Dates: start: 20230525, end: 20230529
  7. SODIUM CHLORIDE [Concomitant]
     Active Substance: SODIUM CHLORIDE
     Indication: Burkitt^s lymphoma
     Dosage: 250.0000 ML, 1X/DAY
     Route: 041
     Dates: start: 20230525, end: 20230529
  8. SODIUM CHLORIDE [Concomitant]
     Active Substance: SODIUM CHLORIDE
     Dosage: 250.0000 ML, 1X/DAY
     Route: 041
     Dates: start: 20230525, end: 20230529

REACTIONS (6)
  - Myelosuppression [Recovered/Resolved]
  - Rash erythematous [Recovered/Resolved]
  - Pruritus [Recovered/Resolved]
  - Pyrexia [Recovered/Resolved]
  - C-reactive protein increased [Recovered/Resolved]
  - Bacterial infection [Recovered/Resolved]

NARRATIVE: CASE EVENT DATE: 20230603
